FAERS Safety Report 9126440 (Version 1)
Quarter: 2013Q1

REPORT INFORMATION
  Report Type: Spontaneous
  Country: US (occurrence: US)
  Receive Date: 20130121
  Receipt Date: 20130121
  Transmission Date: 20140127
  Serious: Yes (Other)
  Sender: FDA-Public Use
  Company Number: CHPA2013US000950

PATIENT
  Age: 83 Year
  Sex: Female

DRUGS (2)
  1. EXCEDRIN TENSION HEADACHE [Suspect]
     Indication: SINUS HEADACHE
     Dosage: 1 DF, PRN
     Route: 048
  2. EXCEDRIN UNKNOWN [Suspect]
     Indication: HEADACHE
     Dosage: UNK, UNK

REACTIONS (1)
  - Blood phosphorus increased [Not Recovered/Not Resolved]
